FAERS Safety Report 7728735-3 (Version None)
Quarter: 2011Q3

REPORT INFORMATION
  Report Type: 
  Country: None (occurrence: None)
  Receive Date: 20110906
  Receipt Date: 20110825
  Transmission Date: 20111222
  Serious: Yes (Other)
  Sender: FDA-Public Use
  Company Number: CH-JNJFOC-20110810925

PATIENT
  Age: 42 Year
  Sex: Male

DRUGS (14)
  1. SOLIAN [Suspect]
     Indication: PRODUCT USED FOR UNKNOWN INDICATION
     Route: 048
     Dates: start: 20100501
  2. CITALOPRAM [Suspect]
     Indication: PRODUCT USED FOR UNKNOWN INDICATION
     Route: 048
     Dates: start: 20101129
  3. CITALOPRAM [Suspect]
     Route: 048
     Dates: start: 20101001, end: 20101129
  4. LISTRIL [Concomitant]
  5. VIREAD [Concomitant]
     Route: 048
  6. NOVORAPID [Concomitant]
     Route: 058
  7. SEROQUEL [Concomitant]
  8. INTELENCE [Suspect]
     Indication: HIV INFECTION
  9. ISENTRESS [Concomitant]
     Route: 048
  10. LAMICTAL [Concomitant]
     Route: 048
  11. CRESTOR [Concomitant]
  12. SOLIAN [Suspect]
     Route: 048
     Dates: start: 20100601
  13. ARCOXIA [Concomitant]
     Route: 048
  14. LEVEMIR [Concomitant]
     Route: 058

REACTIONS (1)
  - ERECTILE DYSFUNCTION [None]
